FAERS Safety Report 9167448 (Version 1)
Quarter: 2013Q1

REPORT INFORMATION
  Report Type: Spontaneous
  Country: US (occurrence: None)
  Receive Date: 20130313
  Receipt Date: 20130313
  Transmission Date: 20140127
  Serious: Yes (Hospitalization)
  Sender: FDA-Public Use
  Company Number: None

PATIENT
  Sex: Female

DRUGS (1)
  1. ACTHAR GEL-SYNTHETIC [Suspect]
     Dosage: 80U/1ML 5 ML VIAL
     Dates: start: 20130116, end: 20130212

REACTIONS (2)
  - Proteinuria [None]
  - No therapeutic response [None]
